FAERS Safety Report 15869335 (Version 3)
Quarter: 2019Q1

REPORT INFORMATION
  Report Type: Report from Study
  Country: US (occurrence: US)
  Receive Date: 20190125
  Receipt Date: 20190223
  Transmission Date: 20190417
  Serious: Yes (Hospitalization)
  Sender: FDA-Public Use
  Company Number: US-ACTELION-A-NJ2019-185246

PATIENT
  Age: 63 Year
  Sex: Male
  Weight: 58.5 kg

DRUGS (11)
  1. ASPIRIN 81 [Concomitant]
     Active Substance: ASPIRIN
     Dosage: 81 MG, QD
     Route: 048
  2. EUCERIN [Concomitant]
     Active Substance: ENSULIZOLE\EUCERIN\OCTINOXATE\OCTISALATE\TITANIUM DIOXIDE\ZINC OXIDE
     Dosage: UNK, BID
     Route: 061
  3. LASIX [Concomitant]
     Active Substance: FUROSEMIDE
     Dosage: 60 MG, BID
     Route: 048
  4. UPTRAVI [Suspect]
     Active Substance: SELEXIPAG
     Indication: PULMONARY HYPERTENSION
     Dosage: 1600 MCG, BID
     Route: 048
     Dates: start: 20161208
  5. SYMBICORT [Concomitant]
     Active Substance: BUDESONIDE\FORMOTEROL FUMARATE DIHYDRATE
     Dosage: 2 PUFFS, BID
     Route: 055
  6. ZETIA [Concomitant]
     Active Substance: EZETIMIBE
     Indication: HYPERLIPIDAEMIA
     Dosage: 10 MG, QD
     Route: 048
  7. MYCOSTATIN [Concomitant]
     Active Substance: NYSTATIN
     Dosage: BID, PRN
     Route: 061
  8. SPIRIVA [Concomitant]
     Active Substance: TIOTROPIUM BROMIDE MONOHYDRATE
     Dosage: 18 MCG, QD
     Route: 045
  9. VITAMIN D3 [Concomitant]
     Active Substance: CHOLECALCIFEROL
     Dosage: 2000 U, QD
     Route: 048
  10. IMMUNGLOBULIN [Concomitant]
     Active Substance: HUMAN IMMUNOGLOBULIN G
     Dosage: UNK, Q1MONTH
     Route: 042
  11. OXYGEN. [Concomitant]
     Active Substance: OXYGEN
     Dosage: 4.5 L, UNK

REACTIONS (43)
  - Cough [Unknown]
  - Left ventricular failure [Unknown]
  - Tricuspid valve incompetence [Unknown]
  - Right atrial dilatation [Unknown]
  - Microangiopathy [Unknown]
  - Muscle twitching [Unknown]
  - Mental status changes [Unknown]
  - Respiratory failure [Unknown]
  - Depression [Unknown]
  - Dyspnoea at rest [Unknown]
  - Pulmonary arterial pressure increased [Unknown]
  - Ascites [Unknown]
  - Hypokalaemia [Unknown]
  - Dyspnoea [Unknown]
  - Gastrooesophageal reflux disease [Unknown]
  - Hypovolaemia [Unknown]
  - Troponin increased [Unknown]
  - Metabolic acidosis [Unknown]
  - Immunodeficiency [Unknown]
  - Confusional state [Unknown]
  - Alcohol abuse [Unknown]
  - Emphysema [Unknown]
  - Dyskinesia [Unknown]
  - Anxiety [Unknown]
  - Dyspnoea exertional [Unknown]
  - Essential hypertension [Unknown]
  - Hyperlipidaemia [Unknown]
  - Abdominal pain lower [Unknown]
  - Pulmonary hypertension [Unknown]
  - Right ventricular failure [Unknown]
  - Seizure [Not Recovered/Not Resolved]
  - Unresponsive to stimuli [Unknown]
  - Chronic obstructive pulmonary disease [Unknown]
  - Cardiac failure congestive [Unknown]
  - Prohormone brain natriuretic peptide increased [Unknown]
  - Pulmonary oedema [Unknown]
  - Delirium [Unknown]
  - Musculoskeletal stiffness [Unknown]
  - Cardiac failure acute [Unknown]
  - Wheezing [Unknown]
  - Encephalopathy [Not Recovered/Not Resolved]
  - Urinary incontinence [Unknown]
  - Dizziness [Unknown]

NARRATIVE: CASE EVENT DATE: 20180816
